FAERS Safety Report 20461649 (Version 1)
Quarter: 2022Q1

REPORT INFORMATION
  Report Type: Spontaneous
  Country: US (occurrence: None)
  Receive Date: 20220211
  Receipt Date: 20220211
  Transmission Date: 20220423
  Serious: Yes (Other)
  Sender: FDA-Public Use
  Company Number: None

PATIENT
  Sex: Female

DRUGS (2)
  1. BUPRENORPHINE\NALOXONE [Suspect]
     Active Substance: BUPRENORPHINE\NALOXONE
     Indication: Drug dependence
     Dosage: FREQUENCY : DAILY;?
  2. Buprenorphine-Naloxone 8-2mg tabs [Concomitant]
     Dates: start: 20220107

REACTIONS (2)
  - Peripheral swelling [None]
  - Nonspecific reaction [None]

NARRATIVE: CASE EVENT DATE: 20220210
